FAERS Safety Report 20134059 (Version 2)
Quarter: 2021Q4

REPORT INFORMATION
  Report Type: Report from Study
  Country: ES (occurrence: ES)
  Receive Date: 20211201
  Receipt Date: 20211207
  Transmission Date: 20220303
  Serious: Yes (Hospitalization)
  Sender: FDA-Public Use
  Company Number: ES-ABBVIE-21K-144-4179055-00

PATIENT
  Sex: Male
  Weight: 70 kg

DRUGS (2)
  1. CARBIDOPA\LEVODOPA [Suspect]
     Active Substance: CARBIDOPA\LEVODOPA
     Indication: Parkinson^s disease
     Route: 050
     Dates: start: 20210701
  2. CARBIDOPA\LEVODOPA [Suspect]
     Active Substance: CARBIDOPA\LEVODOPA

REACTIONS (7)
  - Back pain [Recovering/Resolving]
  - Gait disturbance [Unknown]
  - Back injury [Unknown]
  - Blister [Unknown]
  - Pruritus [Recovering/Resolving]
  - Scratch [Unknown]
  - Contusion [Unknown]

NARRATIVE: CASE EVENT DATE: 20210101
